FAERS Safety Report 15754557 (Version 1)
Quarter: 2018Q4

REPORT INFORMATION
  Report Type: Spontaneous
  Country: ES (occurrence: ES)
  Receive Date: 20181224
  Receipt Date: 20181224
  Transmission Date: 20190205
  Serious: Yes (Other)
  Sender: FDA-Public Use
  Company Number: ES-TEVA-2018-ES-990117

PATIENT
  Age: 47 Year
  Sex: Male

DRUGS (5)
  1. MEROPENEM (7155A) [Suspect]
     Active Substance: MEROPENEM
     Route: 042
     Dates: start: 20180425, end: 20180507
  2. VANCOMICINA (3197A) [Suspect]
     Active Substance: VANCOMYCIN
     Route: 042
     Dates: start: 20180425, end: 20180430
  3. LEVOFLOXACINO (2791A) [Suspect]
     Active Substance: LEVOFLOXACIN
     Route: 065
  4. POSACONAZOL (2996A) [Suspect]
     Active Substance: POSACONAZOLE
     Route: 065
     Dates: start: 20180507
  5. CLADRIBINA (2708A) [Concomitant]
     Route: 065

REACTIONS (1)
  - Toxic skin eruption [Recovered/Resolved]

NARRATIVE: CASE EVENT DATE: 20180425
